FAERS Safety Report 4969688-0 (Version None)
Quarter: 2006Q1

REPORT INFORMATION
  Report Type: 
  Country: None (occurrence: None)
  Receive Date: 20060201
  Receipt Date: 20051226
  Transmission Date: 20060701
  Serious: No
  Sender: FDA-Public Use
  Company Number: 2005PV006269

PATIENT
  Age: 69 Year
  Sex: Male

DRUGS (4)
  1. BYETTA [Suspect]
     Indication: DIABETES MELLITUS NON-INSULIN-DEPENDENT
     Dosage: 10 + 5 MCG; BID; SC
     Route: 058
     Dates: start: 20050912, end: 20051011
  2. BYETTA [Suspect]
     Indication: DIABETES MELLITUS NON-INSULIN-DEPENDENT
     Dosage: 10 + 5 MCG; BID; SC
     Route: 058
     Dates: start: 20051012
  3. GLUCOPAHGE ^BRISTOL-MYERS SQUIBB^ [Concomitant]
  4. AVANDIA [Concomitant]

REACTIONS (3)
  - INCREASED APPETITE [None]
  - INJECTION SITE BRUISING [None]
  - WEIGHT INCREASED [None]
